FAERS Safety Report 5420513-3 (Version None)
Quarter: 2007Q3

REPORT INFORMATION
  Report Type: 
  Country: None (occurrence: None)
  Receive Date: 20070718
  Receipt Date: 20060628
  Transmission Date: 20080115
  Serious: Yes (Hospitalization, Other)
  Sender: FDA-Public Use
  Company Number: 2006082665

PATIENT
  Sex: Female
  Weight: 92.9874 kg

DRUGS (7)
  1. CELEBREX [Suspect]
     Indication: DRUG USE FOR UNKNOWN INDICATION
     Dosage: 400 MG (200 MG, 2 IN 1 D)
     Dates: start: 20030212
  2. NAPROXEN [Concomitant]
  3. ACETYLSALICYLIC ACID SRT [Concomitant]
  4. BEXTRA [Concomitant]
  5. DARVOCET [Concomitant]
  6. DEMEROL [Concomitant]
  7. ACETAMINOPHEN [Concomitant]

REACTIONS (2)
  - BACK PAIN [None]
  - CEREBROVASCULAR ACCIDENT [None]
